FAERS Safety Report 15722837 (Version 5)
Quarter: 2019Q2

REPORT INFORMATION
  Report Type: Report from Study
  Country: FR (occurrence: FR)
  Receive Date: 20181214
  Receipt Date: 20190510
  Transmission Date: 20190711
  Serious: Yes (Hospitalization)
  Sender: FDA-Public Use
  Company Number: FR-PFIZER INC-2018506390

PATIENT
  Age: 77 Year
  Sex: Female
  Weight: 58 kg

DRUGS (22)
  1. CALCIPARINE [Concomitant]
     Active Substance: HEPARIN CALCIUM
     Indication: THROMBOSIS PROPHYLAXIS
     Dosage: UNK
     Dates: start: 20181118, end: 20181119
  2. CANDESARTAN. [Concomitant]
     Active Substance: CANDESARTAN
     Indication: HYPERTENSION
     Dosage: UNK
     Dates: end: 20181210
  3. LOVENOX [Concomitant]
     Active Substance: ENOXAPARIN SODIUM
     Indication: THROMBOSIS PROPHYLAXIS
     Dosage: UNK
     Dates: start: 20181120, end: 20181224
  4. SPASFON LYOC [Concomitant]
     Active Substance: PHLOROGLUCINOL
     Indication: ABDOMINAL PAIN
     Dosage: UNK
     Dates: start: 20181121, end: 20181124
  5. NEFOPAM [Concomitant]
     Active Substance: NEFOPAM
     Indication: ABDOMINAL PAIN
     Dosage: UNK
     Dates: start: 20181123, end: 20181125
  6. GLASDEGIB [Suspect]
     Active Substance: GLASDEGIB
     Indication: MYELODYSPLASTIC SYNDROME
     Dosage: 75 MG, ONCE DAILY
     Route: 048
     Dates: start: 20181123, end: 20181128
  7. VIDAZA [Suspect]
     Active Substance: AZACITIDINE
     Indication: MYELODYSPLASTIC SYNDROME
     Dosage: 117.50 MG FOR 7 DAYS EVERY 28 DAYS
     Route: 058
     Dates: start: 20181114, end: 20181128
  8. TRAMADOL. [Concomitant]
     Active Substance: TRAMADOL
     Indication: ABDOMINAL PAIN
     Dosage: UNK
     Dates: start: 20181118, end: 20181206
  9. TAZOCILLINE [Concomitant]
     Active Substance: PIPERACILLIN SODIUM\TAZOBACTAM SODIUM
     Indication: HYPERTHERMIA
     Dosage: UNK
     Dates: start: 20181125, end: 20181204
  10. ZYMAD [Concomitant]
     Active Substance: CHOLECALCIFEROL
     Indication: VITAMIN SUPPLEMENTATION
     Dosage: UNK
     Dates: start: 20181120, end: 20181218
  11. OFLOXACINE [Concomitant]
     Active Substance: OFLOXACIN
     Indication: URINARY TRACT INFECTION
     Dosage: UNK
     Dates: start: 20181121, end: 20181124
  12. ONDANSETRON [Concomitant]
     Active Substance: ONDANSETRON
     Indication: PROPHYLAXIS OF NAUSEA AND VOMITING
     Dosage: UNK
     Dates: start: 20181114
  13. KARDEGIC [Concomitant]
     Active Substance: ASPIRIN DL-LYSINE
     Indication: AORTIC DISORDER
     Dosage: UNK
     Dates: end: 20181210
  14. SPASFON [Concomitant]
     Indication: ABDOMINAL PAIN
     Dosage: UNK
     Dates: start: 20181125, end: 20181126
  15. MOVICOL [Concomitant]
     Active Substance: POLYETHYLENE GLYCOL 3350\POTASSIUM CHLORIDE\SODIUM BICARBONATE\SODIUM CHLORIDE
     Indication: CONSTIPATION
     Dosage: UNK
     Dates: start: 20181119, end: 20181127
  16. PARACETAMOL [Concomitant]
     Active Substance: ACETAMINOPHEN
     Indication: ABDOMINAL PAIN
     Dosage: UNK
     Dates: start: 20181120, end: 20181121
  17. DILTIAZEM LP [Concomitant]
     Active Substance: DILTIAZEM HYDROCHLORIDE
     Indication: AORTIC DISORDER
     Dosage: UNK
  18. NORMACOL LAVAMENT [Concomitant]
     Indication: CONSTIPATION
     Dosage: UNK
     Dates: start: 20181120, end: 20181120
  19. CEFTRIAXONE. [Concomitant]
     Active Substance: CEFTRIAXONE
     Indication: URINARY TRACT INFECTION
     Dosage: UNK
     Dates: start: 20181121, end: 20181121
  20. TRIMEBUTINE [Concomitant]
     Active Substance: TRIMEBUTINE
     Indication: ABDOMINAL PAIN
     Dosage: UNK
     Dates: start: 20181122, end: 20181124
  21. FLECAINE LP [Concomitant]
     Active Substance: FLECAINIDE
     Indication: NODAL RHYTHM
     Dosage: UNK
  22. SYMBICORT [Concomitant]
     Active Substance: BUDESONIDE\FORMOTEROL FUMARATE DIHYDRATE
     Indication: ASTHMA
     Dosage: UNK
     Dates: start: 20180919

REACTIONS (2)
  - Pulmonary arterial hypertension [Recovering/Resolving]
  - Bronchopulmonary aspergillosis [Recovering/Resolving]

NARRATIVE: CASE EVENT DATE: 20181128
